FAERS Safety Report 7471244-X (Version None)
Quarter: 2011Q2

REPORT INFORMATION
  Report Type: 
  Country: None (occurrence: None)
  Receive Date: 20110510
  Receipt Date: 20110429
  Transmission Date: 20111010
  Serious: Yes (Life-Threatening)
  Sender: FDA-Public Use
  Company Number: US-CELGENEUS-163-21880-11050050

PATIENT
  Sex: Male

DRUGS (10)
  1. GLUCOSAMINE CHONDROITIN [Concomitant]
     Dosage: 500
     Route: 048
  2. BENADRYL [Concomitant]
     Dosage: 25 MILLIGRAM
     Route: 048
  3. TRICOR [Concomitant]
     Dosage: 48 MILLIGRAM
     Route: 048
  4. REVLIMID [Suspect]
     Indication: MYELODYSPLASTIC SYNDROME
     Dosage: 10 MILLIGRAM
     Route: 048
     Dates: start: 20110201
  5. CALCIUM [Concomitant]
     Dosage: 600
     Route: 048
  6. TYLENOL PM [Suspect]
     Route: 048
  7. SAW PALMETTO [Concomitant]
     Dosage: 400 MILLIGRAM
     Route: 048
  8. CENTRUM SILVER [Concomitant]
     Route: 048
  9. NIACIN [Concomitant]
     Dosage: 500 MILLIGRAM
     Route: 048
  10. SIMVASTATIN [Concomitant]
     Dosage: 40 MILLIGRAM
     Route: 048

REACTIONS (1)
  - ACUTE LEUKAEMIA [None]
